FAERS Safety Report 10233621 (Version 2)
Quarter: 2014Q4

REPORT INFORMATION
  Report Type: Spontaneous
  Country: FR (occurrence: None)
  Receive Date: 20140610
  Receipt Date: 20141103
  Transmission Date: 20150528
  Serious: Yes (Hospitalization, Other)
  Sender: FDA-Public Use
  Company Number: 2014COV00003

PATIENT
  Age: 62 Year
  Sex: Female

DRUGS (2)
  1. PLAQUENIL [Suspect]
     Active Substance: HYDROXYCHLOROQUINE SULFATE
     Indication: LICHEN PLANUS
     Route: 048
     Dates: start: 20130705, end: 20130707
  2. KENACORT (TRIAMCINOLONE) [Concomitant]

REACTIONS (19)
  - Dermatomyositis [None]
  - Skin burning sensation [None]
  - Generalised oedema [None]
  - Muscular weakness [None]
  - Ovarian mass [None]
  - Nasopharyngeal reflux [None]
  - Lung disorder [None]
  - Alopecia [None]
  - Osteopenia [None]
  - Lichen planus [None]
  - Dysphonia [None]
  - Dysphagia [None]
  - Xerosis [None]
  - Hepatocellular injury [None]
  - Pyrexia [None]
  - Asthenia [None]
  - Oral herpes [None]
  - Erythema [None]
  - Lichenoid keratosis [None]

NARRATIVE: CASE EVENT DATE: 2013
